FAERS Safety Report 25625093 (Version 1)
Quarter: 2025Q3

REPORT INFORMATION
  Report Type: Spontaneous
  Country: AU (occurrence: AU)
  Receive Date: 20250731
  Receipt Date: 20250731
  Transmission Date: 20251021
  Serious: Yes (Death)
  Sender: ROCHE
  Company Number: AU-ROCHE-10000347514

PATIENT
  Age: 31 Year
  Sex: Male

DRUGS (1)
  1. EVRYSDI [Suspect]
     Active Substance: RISDIPLAM
     Indication: Spinal muscular atrophy
     Route: 048
     Dates: end: 2025

REACTIONS (1)
  - Death [Fatal]

NARRATIVE: CASE EVENT DATE: 20250711
